FAERS Safety Report 4605223-4 (Version None)
Quarter: 2005Q1

REPORT INFORMATION
  Report Type: 
  Country: None (occurrence: None)
  Receive Date: 20050310
  Receipt Date: 20040210
  Transmission Date: 20050727
  Serious: No
  Sender: FDA-Public Use
  Company Number: US-BRISTOL-MYERS SQUIBB COMPANY-12511473

PATIENT
  Age: 37 Year
  Sex: Female
  Weight: 48 kg

DRUGS (5)
  1. VAGISTAT-1 [Suspect]
     Indication: VAGINAL MYCOSIS
     Route: 067
     Dates: start: 20040202, end: 20040202
  2. LEVODOPA [Concomitant]
  3. PAXIL [Concomitant]
  4. KLONOPIN [Concomitant]
  5. MULTI-VITAMIN [Concomitant]

REACTIONS (1)
  - DRUG INEFFECTIVE [None]
